FAERS Safety Report 8774558 (Version 1)
Quarter: 2012Q4

REPORT INFORMATION
  Report Type: 
  Country: US (occurrence: US)
  Receive Date: 20120907
  Receipt Date: 20120907
  Transmission Date: 20130627
  Serious: Yes (Other)
  Sender: FDA-Public Use
  Company Number: US-BIOGENIDEC-2012BI033982

PATIENT
  Sex: Female

DRUGS (4)
  1. AVONEX [Suspect]
     Indication: MULTIPLE SCLEROSIS
     Route: 030
     Dates: start: 20050324, end: 20101011
  2. AVONEX [Suspect]
     Indication: MULTIPLE SCLEROSIS
     Route: 030
     Dates: start: 20110102
  3. KEPPRA [Concomitant]
     Indication: CONVULSION
     Dates: start: 201012, end: 201108
  4. KEPPRA [Concomitant]
     Indication: CONVULSION
     Dates: start: 201109

REACTIONS (3)
  - Convulsion [Recovered/Resolved]
  - Grand mal convulsion [Recovered/Resolved]
  - Drug dose omission [Unknown]
